FAERS Safety Report 16371392 (Version 1)
Quarter: 2019Q2

REPORT INFORMATION
  Report Type: Spontaneous
  Country: US (occurrence: US)
  Receive Date: 20190530
  Receipt Date: 20190530
  Transmission Date: 20190711
  Serious: No
  Sender: FDA-Public Use
  Company Number: US-009507513-1905USA000231

PATIENT
  Age: 67 Year
  Sex: Male

DRUGS (3)
  1. ISAVUCONAZONIUM [Concomitant]
     Active Substance: ISAVUCONAZONIUM
     Indication: ANTIFUNGAL PROPHYLAXIS
  2. CYTARABINE (+) FLUDARABINE PHOSPHATE (+) GRANULOCYTE COLONY STIMULATIN [Concomitant]
     Indication: ACUTE LYMPHOCYTIC LEUKAEMIA REFRACTORY
  3. NOXAFIL [Suspect]
     Active Substance: POSACONAZOLE
     Indication: MUCORMYCOSIS

REACTIONS (1)
  - Product use in unapproved indication [Unknown]
